FAERS Safety Report 15748505 (Version 1)
Quarter: 2018Q4

REPORT INFORMATION
  Report Type: Report from Study
  Country: FR (occurrence: FR)
  Receive Date: 20181221
  Receipt Date: 20181221
  Transmission Date: 20190205
  Serious: Yes (Other)
  Sender: FDA-Public Use
  Company Number: FR-ROCHE-2233555

PATIENT

DRUGS (1)
  1. VEMURAFENIB. [Suspect]
     Active Substance: VEMURAFENIB
     Indication: LANGERHANS^ CELL HISTIOCYTOSIS
     Route: 065

REACTIONS (5)
  - Photosensitivity reaction [Unknown]
  - Rash [Unknown]
  - Keratosis pilaris [Unknown]
  - Neutrophilic panniculitis [Unknown]
  - Xerosis [Unknown]
